FAERS Safety Report 8158441-5 (Version None)
Quarter: 2012Q1

REPORT INFORMATION
  Report Type: 
  Country: None (occurrence: None)
  Receive Date: 20120223
  Receipt Date: 20120220
  Transmission Date: 20120608
  Serious: No
  Sender: FDA-Public Use
  Company Number: US-PFIZER INC-2012044729

PATIENT
  Sex: Male
  Weight: 101.59 kg

DRUGS (4)
  1. OXYCODONE [Concomitant]
     Indication: PAIN
     Dosage: UNK
  2. WARFARIN [Concomitant]
     Indication: THROMBOSIS
     Dosage: UNK
  3. VIAGRA [Suspect]
     Indication: ERECTILE DYSFUNCTION
     Dosage: 50 MG, AS NEEDED
     Route: 048
     Dates: start: 20110501, end: 20111001
  4. METFORMIN [Concomitant]
     Dosage: UNK

REACTIONS (1)
  - DRUG INEFFECTIVE [None]
